FAERS Safety Report 6891233-3 (Version None)
Quarter: 2010Q3

REPORT INFORMATION
  Report Type: 
  Country: None (occurrence: None)
  Receive Date: 20100731
  Receipt Date: 20090703
  Transmission Date: 20110219
  Serious: No
  Sender: FDA-Public Use
  Company Number: US-PFIZER INC-2009216754

PATIENT
  Age: 37 Year
  Sex: Male

DRUGS (2)
  1. LIPITOR [Suspect]
     Indication: BLOOD CHOLESTEROL INCREASED
  2. ZETIA [Concomitant]
     Dosage: UNK

REACTIONS (2)
  - FATIGUE [None]
  - MUSCLE SPASMS [None]
